FAERS Safety Report 11885663 (Version 4)
Quarter: 2017Q4

REPORT INFORMATION
  Report Type: Report from Study
  Country: None (occurrence: BR)
  Receive Date: 20160104
  Receipt Date: 20171029
  Transmission Date: 20180320
  Serious: Yes (Hospitalization, Other)
  Sender: FDA-Public Use
  Company Number: BR-ABBVIE-15K-020-1530503-00

PATIENT
  Age: 56 Year
  Sex: Female
  Weight: 72 kg

DRUGS (9)
  1. PREDNISONE. [Concomitant]
     Active Substance: PREDNISONE
     Indication: CROHN^S DISEASE
     Dosage: ITS SUPPOSED TO TAKE IT UNTIL 31 DEC 15
  2. AZATHIOPRINE. [Concomitant]
     Active Substance: AZATHIOPRINE
     Indication: IMMUNOSUPPRESSION
     Route: 048
     Dates: start: 2014
  3. HUMIRA [Suspect]
     Active Substance: ADALIMUMAB
     Indication: CROHN^S DISEASE
     Dosage: LOADING DOSE, WEEK 0?S0
     Route: 058
     Dates: start: 20150724, end: 20150724
  4. PREDNISONE. [Concomitant]
     Active Substance: PREDNISONE
     Route: 048
     Dates: start: 201608, end: 201612
  5. LEVOTHYROXINE SODIUM (PURAN T4) [Concomitant]
     Indication: THYROID DISORDER
     Route: 048
     Dates: start: 1987
  6. HUMIRA [Suspect]
     Active Substance: ADALIMUMAB
     Dosage: MAINTENANCE DOSE
     Route: 058
     Dates: start: 2015, end: 20171022
  7. AZATHIOPRINE. [Concomitant]
     Active Substance: AZATHIOPRINE
     Indication: SUPPLEMENTATION THERAPY
     Route: 048
     Dates: start: 20160820
  8. HUMIRA [Suspect]
     Active Substance: ADALIMUMAB
     Dosage: LOADING DOSE, WEEK 2?S2
     Route: 058
     Dates: start: 201508, end: 201508
  9. VITAMIN D [Concomitant]
     Active Substance: CHOLECALCIFEROL
     Indication: VITAMIN SUPPLEMENTATION
     Route: 048
     Dates: start: 2013

REACTIONS (12)
  - Anaemia [Unknown]
  - Weight increased [Recovered/Resolved]
  - Ileal ulcer [Unknown]
  - Intestinal ulcer [Recovered/Resolved]
  - Weight decreased [Recovered/Resolved]
  - Menopause [Unknown]
  - Gastrointestinal erosion [Unknown]
  - Gastrointestinal inflammation [Unknown]
  - Small intestinal obstruction [Recovered/Resolved]
  - Abdominal pain [Recovered/Resolved]
  - Hypophagia [Recovered/Resolved]
  - Incision site pain [Unknown]

NARRATIVE: CASE EVENT DATE: 2015
